FAERS Safety Report 12993061 (Version 2)
Quarter: 2017Q2

REPORT INFORMATION
  Report Type: Spontaneous
  Country: MX (occurrence: MX)
  Receive Date: 20161202
  Receipt Date: 20170502
  Transmission Date: 20170830
  Serious: Yes (Hospitalization)
  Sender: FDA-Public Use
  Company Number: MX-ROCHE-1862753

PATIENT
  Sex: Female

DRUGS (1)
  1. TOCILIZUMAB [Suspect]
     Active Substance: TOCILIZUMAB
     Indication: RHEUMATOID ARTHRITIS
     Dosage: TOTAL : 8 ADMINISTRATIONS
     Route: 042
     Dates: start: 201407, end: 201511

REACTIONS (9)
  - Chills [Unknown]
  - Blood pressure decreased [Unknown]
  - Dyspnoea [Unknown]
  - Pyrexia [Unknown]
  - Malaise [Unknown]
  - Sepsis [Unknown]
  - Suspected counterfeit product [Unknown]
  - Hypotension [Unknown]
  - Bacteraemia [Unknown]

NARRATIVE: CASE EVENT DATE: 20151117
